FAERS Safety Report 18073956 (Version 1)
Quarter: 2020Q3

REPORT INFORMATION
  Report Type: Report from Study
  Country: FR (occurrence: FR)
  Receive Date: 20200727
  Receipt Date: 20200727
  Transmission Date: 20201103
  Serious: Yes (Other)
  Sender: FDA-Public Use
  Company Number: FR-MYLANLABS-2020M1066457

PATIENT
  Age: 74 Year
  Sex: Female

DRUGS (3)
  1. VELCADE [Suspect]
     Active Substance: BORTEZOMIB
     Indication: PLASMA CELL MYELOMA
     Dosage: BORTEZOMIB 2.1 MG/INTAKE 2 INTAKE(S)/WEEK 2 WEEK(S)/CYCLE
     Route: 065
     Dates: end: 20190325
  2. PREDNISONE. [Suspect]
     Active Substance: PREDNISONE
     Indication: PLASMA CELL MYELOMA
     Dosage: UNK
     Route: 065
     Dates: end: 20190325
  3. MELPHALAN. [Suspect]
     Active Substance: MELPHALAN
     Indication: PLASMA CELL MYELOMA
     Dosage: MELPHALAN 14 MG/INTAKE 4 INTAKE(S)/WEEK 1 WEEK(S)/CYCLE
     Route: 065
     Dates: end: 20190325

REACTIONS (2)
  - Neuropathy peripheral [Unknown]
  - Injection site reaction [Unknown]
